FAERS Safety Report 8518124 (Version 2)
Quarter: 2014Q1

REPORT INFORMATION
  Report Type: Spontaneous
  Country: US (occurrence: US)
  Receive Date: 20120417
  Receipt Date: 20140114
  Transmission Date: 20141002
  Serious: No
  Sender: FDA-Public Use
  Company Number: US-ASTRAZENECA-2010SE16363

PATIENT
  Age: 53 Year
  Sex: Male

DRUGS (8)
  1. NEXIUM [Suspect]
     Indication: GASTROOESOPHAGEAL REFLUX DISEASE
     Route: 048
  2. TEMAZEPAM [Concomitant]
  3. BUTALBITAL/APAP/CAFF [Concomitant]
  4. FUROSEMIDE [Concomitant]
  5. ACETAMINOPHEN [Concomitant]
  6. DIVALPROEX [Concomitant]
  7. DILITIAZEM [Concomitant]
  8. VENTOLIN HFA [Concomitant]

REACTIONS (4)
  - Gastrointestinal disorder [Unknown]
  - Dizziness [Unknown]
  - Malaise [Unknown]
  - Drug dose omission [Unknown]
